FAERS Safety Report 5205370-2 (Version None)
Quarter: 2007Q1

REPORT INFORMATION
  Report Type: 
  Country: None (occurrence: None)
  Receive Date: 20070110
  Receipt Date: 20070105
  Transmission Date: 20070707
  Serious: Yes (Hospitalization)
  Sender: FDA-Public Use
  Company Number: US-MERCK-0610USA07158

PATIENT
  Age: 73 Year
  Sex: Female

DRUGS (2)
  1. COSOPT [Suspect]
     Indication: NORMAL TENSION GLAUCOMA
     Route: 047
     Dates: start: 20051207
  2. XALATAN [Concomitant]
     Route: 065

REACTIONS (2)
  - BILE DUCT STENOSIS [None]
  - CHOLELITHIASIS [None]
